FAERS Safety Report 5143222-7 (Version None)
Quarter: 2006Q4

REPORT INFORMATION
  Report Type: 
  Country: None (occurrence: None)
  Receive Date: 20061030
  Receipt Date: 20061016
  Transmission Date: 20070319
  Serious: Yes (Hospitalization)
  Sender: FDA-Public Use
  Company Number: FR200609000033

PATIENT
  Age: 56 Year
  Sex: Female

DRUGS (4)
  1. FORTEO [Suspect]
     Indication: OSTEOPOROSIS
     Dosage: 20 UG, DAILY (1/D), SUBCUTANEOUS
     Route: 058
     Dates: start: 20060816, end: 20060829
  2. FORTEO PEN                                (FORTEO PEN) PEN, DISPOSABLE [Concomitant]
  3. CORTISONE ACETATE [Concomitant]
  4. CORTICREME         (HYDROCORTISONE ACETATE) CREAM [Concomitant]

REACTIONS (7)
  - ANOREXIA [None]
  - CROHN'S DISEASE [None]
  - FLATULENCE [None]
  - HYPONATRAEMIA [None]
  - INSOMNIA [None]
  - PYREXIA [None]
  - WEIGHT DECREASED [None]
